FAERS Safety Report 10244143 (Version 1)
Quarter: 2014Q2

REPORT INFORMATION
  Report Type: Spontaneous
  Country: US (occurrence: None)
  Receive Date: 20140616
  Receipt Date: 20140616
  Transmission Date: 20141212
  Serious: Yes (Other)
  Sender: FDA-Public Use
  Company Number: None

PATIENT
  Age: 38 Year
  Sex: Female
  Weight: 90.72 kg

DRUGS (1)
  1. MIRVASO 0.33% GALDERMA [Suspect]
     Indication: ROSACEA
     Dosage: PEA SIZE AMOUNT ONCE DAILY APPLIED TO A SURFACE, USUALLY THE SKIN
     Dates: start: 20140529, end: 20140604

REACTIONS (4)
  - Application site inflammation [None]
  - Application site erythema [None]
  - Application site pain [None]
  - Dry mouth [None]
